FAERS Safety Report 5289075-8 (Version None)
Quarter: 2007Q1

REPORT INFORMATION
  Report Type: 
  Country: None (occurrence: None)
  Receive Date: 20070116
  Receipt Date: 20051202
  Transmission Date: 20070707
  Serious: Yes (Other)
  Sender: FDA-Public Use
  Company Number: FEI2005-3274

PATIENT
  Age: 49 Year
  Sex: Female

DRUGS (2)
  1. INTRAUTERINE COPPER CONTRACEPTIVE [Suspect]
     Indication: CONTRACEPTION
     Dosage: INTRA-UTERINE
     Route: 015
     Dates: start: 19950101
  2. COUMADIN [Concomitant]

REACTIONS (2)
  - IUCD COMPLICATION [None]
  - IUD MIGRATION [None]
